FAERS Safety Report 7117346-9 (Version None)
Quarter: 2010Q4

REPORT INFORMATION
  Report Type: 
  Country: None (occurrence: None)
  Receive Date: 20101122
  Receipt Date: 20101116
  Transmission Date: 20110411
  Serious: Yes (Other)
  Sender: FDA-Public Use
  Company Number: DE-CEPHALON-2010006035

PATIENT
  Sex: Male

DRUGS (5)
  1. FENTANYL CITRATE [Suspect]
     Dates: start: 20100412
  2. MORPHINE [Concomitant]
     Indication: BREAKTHROUGH PAIN
  3. CISPLATIN [Concomitant]
  4. DICLOFENAC SODIUM [Concomitant]
  5. AMITRIPTYLINE HCL [Concomitant]

REACTIONS (11)
  - CONSTIPATION [None]
  - DECREASED APPETITE [None]
  - DISTURBANCE IN ATTENTION [None]
  - DIZZINESS [None]
  - DRUG PRESCRIBING ERROR [None]
  - FATIGUE [None]
  - GENERAL PHYSICAL HEALTH DETERIORATION [None]
  - HYPERHIDROSIS [None]
  - NAUSEA [None]
  - SLEEP DISORDER [None]
  - UNEVALUABLE EVENT [None]
